FAERS Safety Report 9821639 (Version 2)
Quarter: 2014Q1

REPORT INFORMATION
  Report Type: Spontaneous
  Country: US (occurrence: US)
  Receive Date: 20140116
  Receipt Date: 20140326
  Transmission Date: 20141002
  Serious: No
  Sender: FDA-Public Use
  Company Number: US-BIOGENIDEC-2014BI000882

PATIENT
  Age: 32 Year
  Sex: Female

DRUGS (12)
  1. TECFIDERA [Suspect]
     Indication: RELAPSING-REMITTING MULTIPLE SCLEROSIS
     Route: 048
     Dates: start: 20130625
  2. TECFIDERA [Suspect]
     Indication: RELAPSING-REMITTING MULTIPLE SCLEROSIS
     Dates: start: 20130712
  3. TECFIDERA [Suspect]
     Indication: RELAPSING-REMITTING MULTIPLE SCLEROSIS
     Dates: start: 20130719, end: 20130722
  4. TECFIDERA [Suspect]
     Indication: RELAPSING-REMITTING MULTIPLE SCLEROSIS
     Dates: end: 20131217
  5. LOVASTATIN [Concomitant]
  6. ROPINIROLE [Concomitant]
  7. LISINOPRIL [Concomitant]
  8. TIZANIDINE [Concomitant]
  9. RANITIDINE [Concomitant]
  10. HYDROXYZINE [Concomitant]
  11. SERTRALINE [Concomitant]
  12. TOPAMAX [Concomitant]

REACTIONS (12)
  - Optic neuritis [Recovered/Resolved]
  - Adverse event [Unknown]
  - Herpes zoster [Not Recovered/Not Resolved]
  - Multiple sclerosis [Unknown]
  - Visual acuity reduced [Not Recovered/Not Resolved]
  - Mood altered [Unknown]
  - Eye pain [Not Recovered/Not Resolved]
  - Drug ineffective [Unknown]
  - Optic atrophy [Unknown]
  - Visual field defect [Unknown]
  - Sinusitis [Not Recovered/Not Resolved]
  - Upper respiratory tract infection [Not Recovered/Not Resolved]
